FAERS Safety Report 7169144-8 (Version None)
Quarter: 2010Q4

REPORT INFORMATION
  Report Type: 
  Country: None (occurrence: None)
  Receive Date: 20101216
  Receipt Date: 20101025
  Transmission Date: 20110411
  Serious: No
  Sender: FDA-Public Use
  Company Number: PR-BAYER-201038631NA

PATIENT
  Sex: Male

DRUGS (3)
  1. MAGNEVIST [Suspect]
     Indication: PENIS CARCINOMA
     Dosage: FOREARM
     Route: 042
     Dates: start: 20100603, end: 20100603
  2. MAGNEVIST [Suspect]
  3. MAGNEVIST [Suspect]

REACTIONS (2)
  - CELLULITIS [None]
  - DYSPNOEA [None]
